FAERS Safety Report 17410824 (Version 2)
Quarter: 2020Q1

REPORT INFORMATION
  Report Type: Spontaneous
  Country: US (occurrence: US)
  Receive Date: 20200212
  Receipt Date: 20200212
  Transmission Date: 20200409
  Serious: No
  Sender: FDA-Public Use
  Company Number: US-BAUSCH-BL-2019-001020

PATIENT
  Age: 76 Year
  Sex: Male

DRUGS (2)
  1. OMEPRAZOLE AND SODIUM BICARBONATE CAPSULES (OCEANSIDE) [Suspect]
     Active Substance: OMEPRAZOLE\SODIUM BICARBONATE
     Indication: GASTROOESOPHAGEAL REFLUX DISEASE
     Route: 048
     Dates: start: 20190102, end: 20190106
  2. OMEPRAZOLE AND SODIUM BICARBONATE CAPSULES (OCEANSIDE) [Suspect]
     Active Substance: OMEPRAZOLE\SODIUM BICARBONATE
     Dosage: NEW BOTTLE
     Route: 048
     Dates: start: 20190109, end: 20190109

REACTIONS (2)
  - Product substitution issue [Unknown]
  - Abdominal pain upper [Not Recovered/Not Resolved]

NARRATIVE: CASE EVENT DATE: 201901
